FAERS Safety Report 12381310 (Version 1)
Quarter: 2016Q2

REPORT INFORMATION
  Report Type: Spontaneous
  Country: CN (occurrence: CN)
  Receive Date: 20160518
  Receipt Date: 20160518
  Transmission Date: 20160815
  Serious: Yes (Death, Hospitalization)
  Sender: FDA-Public Use
  Company Number: CN-UNITED THERAPEUTICS-UNT-2016-007739

PATIENT
  Age: 60 Year
  Sex: Female
  Weight: 53 kg

DRUGS (2)
  1. REMODULIN [Suspect]
     Active Substance: TREPROSTINIL
     Dosage: 0.020 ?G/KG, CONTINUING
     Route: 058
  2. REMODULIN [Suspect]
     Active Substance: TREPROSTINIL
     Indication: PULMONARY ARTERIAL HYPERTENSION
     Dosage: 0.015 ?G/KG, CONTINUING
     Route: 058
     Dates: start: 20150922

REACTIONS (3)
  - Cardiac failure [Fatal]
  - Multiple organ dysfunction syndrome [Fatal]
  - Condition aggravated [Unknown]

NARRATIVE: CASE EVENT DATE: 201604
